FAERS Safety Report 4634943-0 (Version None)
Quarter: 2005Q2

REPORT INFORMATION
  Report Type: 
  Country: None (occurrence: None)
  Receive Date: 20050414
  Receipt Date: 20050322
  Transmission Date: 20051028
  Serious: Yes (Hospitalization)
  Sender: FDA-Public Use
  Company Number: PHRM2005FR01120

PATIENT
  Age: 58 Year
  Sex: Female

DRUGS (4)
  1. LAMISIL [Suspect]
     Indication: NAIL TINEA
     Dosage: 250 MG, QD
     Route: 048
     Dates: start: 20040331, end: 20040901
  2. EFFERALGAN [Suspect]
     Indication: CARPAL TUNNEL SYNDROME
     Dosage: FROM 500 MG TO 1500 MG
  3. STILNOX [Concomitant]
     Indication: INSOMNIA
     Dosage: 1/2 TABLET/DAY
  4. ZYRTEC [Concomitant]
     Indication: PRURITUS
     Dosage: PRN
     Route: 048

REACTIONS (12)
  - ABDOMINAL PAIN [None]
  - ABDOMINAL PAIN UPPER [None]
  - ALANINE AMINOTRANSFERASE INCREASED [None]
  - ASPARTATE AMINOTRANSFERASE INCREASED [None]
  - ASTHENIA [None]
  - CHOLELITHIASIS [None]
  - CYTOLYTIC HEPATITIS [None]
  - GAMMA-GLUTAMYLTRANSFERASE INCREASED [None]
  - HEPATITIS [None]
  - HEPATITIS CHOLESTATIC [None]
  - NAUSEA [None]
  - VOMITING [None]
